FAERS Safety Report 20868160 (Version 1)
Quarter: 2022Q2

REPORT INFORMATION
  Report Type: Spontaneous
  Country: DE (occurrence: DE)
  Receive Date: 20220524
  Receipt Date: 20220524
  Transmission Date: 20220721
  Serious: Yes (Other)
  Sender: FDA-Public Use
  Company Number: DE-ORGANON-O2205DEU001331

PATIENT
  Age: 45 Year
  Sex: Female

DRUGS (6)
  1. ETONOGESTREL [Suspect]
     Active Substance: ETONOGESTREL
     Dosage: 1 IMPLANT
     Route: 059
     Dates: start: 2021
  2. AMISULPRIDE [Concomitant]
     Active Substance: AMISULPRIDE
     Indication: Mental disorder
     Dosage: UNK
  3. RISPERDAL CONSTA [Concomitant]
     Active Substance: RISPERIDONE
     Indication: Mental disorder
     Dosage: UNK
  4. ZUCLOPENTHIXOL ACETATE [Concomitant]
     Active Substance: ZUCLOPENTHIXOL ACETATE
     Indication: Mental disorder
     Dosage: UNK
  5. PIPAMPERONE [Concomitant]
     Active Substance: PIPAMPERONE
     Indication: Mental disorder
     Dosage: UNK
  6. LAVENDER OIL [Concomitant]
     Active Substance: LAVENDER OIL
     Dosage: UNK

REACTIONS (5)
  - Diabetes mellitus [Unknown]
  - Affective disorder [Unknown]
  - Gastrointestinal disorder [Unknown]
  - Pain [Unknown]
  - Anxiety [Unknown]
